FAERS Safety Report 21710470 (Version 2)
Quarter: 2022Q4

REPORT INFORMATION
  Report Type: Spontaneous
  Country: JP (occurrence: JP)
  Receive Date: 20221212
  Receipt Date: 20221222
  Transmission Date: 20230112
  Serious: Yes (Other)
  Sender: FDA-Public Use
  Company Number: JP-KYOWAKIRIN-2022AKK018035

PATIENT
  Age: 6 Decade
  Sex: Male

DRUGS (16)
  1. PEGFILGRASTIM [Suspect]
     Active Substance: PEGFILGRASTIM
     Indication: Colony stimulating factor therapy
     Dosage: 3.6 MILLIGRAM
     Route: 058
     Dates: start: 20221120, end: 20221120
  2. PEGFILGRASTIM [Suspect]
     Active Substance: PEGFILGRASTIM
     Dosage: 3.6 MILLIGRAM
     Route: 058
     Dates: start: 20221218
  3. BLEOMYCIN [Suspect]
     Active Substance: BLEOMYCIN SULFATE
     Indication: Chemotherapy
     Dosage: 30 MILLIGRAM
     Route: 040
     Dates: start: 20221018, end: 20221018
  4. BLEOMYCIN [Suspect]
     Active Substance: BLEOMYCIN SULFATE
     Dosage: 30 MILLIGRAM
     Route: 040
     Dates: start: 20221025, end: 20221025
  5. BLEOMYCIN [Suspect]
     Active Substance: BLEOMYCIN SULFATE
     Dosage: 30 MILLIGRAM
     Route: 040
     Dates: start: 20221101, end: 20221101
  6. BLEOMYCIN [Suspect]
     Active Substance: BLEOMYCIN SULFATE
     Dosage: 30 MILLIGRAM
     Route: 040
     Dates: start: 20221114, end: 20221114
  7. ETOPOSIDE [Concomitant]
     Active Substance: ETOPOSIDE
     Indication: Chemotherapy
     Dosage: 155 MG
     Route: 041
     Dates: start: 20221018, end: 20221022
  8. ETOPOSIDE [Concomitant]
     Active Substance: ETOPOSIDE
     Dosage: 155 MG
     Route: 041
     Dates: start: 20221114, end: 20221118
  9. ETOPOSIDE [Concomitant]
     Active Substance: ETOPOSIDE
     Dosage: 155 MG
     Route: 041
     Dates: start: 20221212, end: 20221216
  10. CISPLATIN [Concomitant]
     Active Substance: CISPLATIN
     Indication: Chemotherapy
     Dosage: 30 MG
     Route: 041
     Dates: start: 20221018, end: 20221022
  11. CISPLATIN [Concomitant]
     Active Substance: CISPLATIN
     Dosage: 30 MG
     Route: 041
     Dates: start: 20221114, end: 20221118
  12. CISPLATIN [Concomitant]
     Active Substance: CISPLATIN
     Dosage: 30 MG
     Route: 041
     Dates: start: 20221212, end: 20221216
  13. AMLODIPINE [Concomitant]
     Active Substance: AMLODIPINE BESYLATE
     Indication: Hypertension
     Dosage: 2.5 MG
     Route: 048
  14. VILDAGLIPTIN [Concomitant]
     Active Substance: VILDAGLIPTIN
     Indication: Diabetes mellitus
     Dosage: 50 MG, BID
     Route: 048
  15. AMARYL [Concomitant]
     Active Substance: GLIMEPIRIDE
     Indication: Diabetes mellitus
     Dosage: 1 MG
     Route: 048
  16. METGLUCO [Concomitant]
     Active Substance: METFORMIN HYDROCHLORIDE
     Indication: Diabetes mellitus
     Dosage: 250 MILLIGRAM, BID
     Route: 048

REACTIONS (3)
  - Interstitial lung disease [Unknown]
  - Thrombocytopenia [Recovering/Resolving]
  - Chemotherapy [Unknown]

NARRATIVE: CASE EVENT DATE: 20221128
